FAERS Safety Report 25909406 (Version 1)
Quarter: 2025Q4

REPORT INFORMATION
  Report Type: Report from Study
  Country: US (occurrence: US)
  Receive Date: 20251011
  Receipt Date: 20251011
  Transmission Date: 20260118
  Serious: Yes (Hospitalization, Other)
  Sender: ABBVIE
  Company Number: US-ABBVIE-6491893

PATIENT
  Age: 60 Year
  Sex: Male

DRUGS (1)
  1. VYALEV [Suspect]
     Active Substance: FOSCARBIDOPA\FOSLEVODOPA
     Indication: Parkinson^s disease
     Dosage: DOSAGE: 240 MG/ML FREQUENCY TEXT: CONTINUOUS 24-HOUR INFUSION?LAST ADMIN DATE: OCT 2025
     Route: 058
     Dates: start: 20251002

REACTIONS (4)
  - Hypersensitivity [Not Recovered/Not Resolved]
  - Infusion site swelling [Not Recovered/Not Resolved]
  - Infusion site mass [Not Recovered/Not Resolved]
  - Infusion site cellulitis [Not Recovered/Not Resolved]

NARRATIVE: CASE EVENT DATE: 20251005
